FAERS Safety Report 7574502-3 (Version None)
Quarter: 2011Q2

REPORT INFORMATION
  Report Type: 
  Country: None (occurrence: None)
  Receive Date: 20110627
  Receipt Date: 20110613
  Transmission Date: 20111010
  Serious: Yes (Other)
  Sender: FDA-Public Use
  Company Number: US-BAYER-2011-051430

PATIENT
  Sex: Female

DRUGS (2)
  1. PHILLIPS' LAXATIVE DIETARY SUPPLEMENT [Suspect]
     Route: 048
  2. PHILLIPS' MILK OF MAGNESIA LIQUID ORIGINAL [Suspect]
     Route: 048

REACTIONS (2)
  - CHOKING [None]
  - RETCHING [None]
